FAERS Safety Report 7079924-5 (Version None)
Quarter: 2010Q4

REPORT INFORMATION
  Report Type: 
  Country: None (occurrence: None)
  Receive Date: 20101102
  Receipt Date: 20100920
  Transmission Date: 20110411
  Serious: Yes (Hospitalization, Other)
  Sender: FDA-Public Use
  Company Number: US-BAXTER-2009BH017009

PATIENT
  Age: 79 Year
  Sex: Male
  Weight: 84 kg

DRUGS (40)
  1. HEPARIN SODIUM INJECTION [Suspect]
     Indication: ATRIAL FIBRILLATION
     Route: 040
     Dates: start: 20080202, end: 20080202
  2. HEPARIN SODIUM INJECTION [Suspect]
     Indication: THROMBOSIS PROPHYLAXIS
     Route: 040
     Dates: start: 20080202, end: 20080202
  3. HEPARIN SODIUM INJECTION [Suspect]
     Route: 040
     Dates: start: 20080202, end: 20080202
  4. HEPARIN SODIUM INJECTION [Suspect]
     Indication: INTRAVENOUS CATHETER MANAGEMENT
     Route: 040
     Dates: start: 20080202, end: 20080202
  5. HEPARIN SODIUM INJECTION [Suspect]
     Route: 042
     Dates: start: 20080303, end: 20080306
  6. HEPARIN SODIUM INJECTION [Suspect]
     Route: 042
     Dates: start: 20080303, end: 20080306
  7. HEPARIN SODIUM INJECTION [Suspect]
     Route: 042
     Dates: start: 20080303, end: 20080306
  8. HEPARIN SODIUM INJECTION [Suspect]
     Route: 042
     Dates: start: 20080303, end: 20080306
  9. HEPARIN SODIUM INJECTION [Suspect]
     Route: 042
     Dates: start: 20080303, end: 20080306
  10. HEPARIN SODIUM INJECTION [Suspect]
     Route: 042
     Dates: start: 20080303, end: 20080306
  11. HEPARIN SODIUM INJECTION [Suspect]
     Route: 042
     Dates: start: 20080303, end: 20080306
  12. HEPARIN SODIUM INJECTION [Suspect]
     Route: 042
     Dates: start: 20080303, end: 20080306
  13. HEPARIN SODIUM 5,000 UNITS IN DEXTROSE 5% [Suspect]
     Indication: ATRIAL FIBRILLATION
     Route: 041
     Dates: start: 20080202, end: 20080210
  14. HEPARIN SODIUM 5,000 UNITS IN DEXTROSE 5% [Suspect]
     Indication: THROMBOSIS PROPHYLAXIS
     Route: 041
     Dates: start: 20080202, end: 20080210
  15. HEPARIN SODIUM 5,000 UNITS IN DEXTROSE 5% [Suspect]
     Route: 041
     Dates: start: 20080202, end: 20080210
  16. HEPARIN SODIUM INJECTION [Suspect]
     Dates: start: 20080202, end: 20080202
  17. HEPARIN SODIUM INJECTION [Suspect]
     Dates: start: 20080202, end: 20080202
  18. HEPARIN SODIUM INJECTION [Suspect]
     Dates: start: 20080202, end: 20080202
  19. HEPARIN SODIUM INJECTION [Suspect]
     Dates: start: 20080202, end: 20080202
  20. HEPARIN SODIUM INJECTION [Suspect]
     Dates: start: 20080303, end: 20080306
  21. HEPARIN SODIUM INJECTION [Suspect]
     Dates: start: 20080303, end: 20080306
  22. HEPARIN SODIUM INJECTION [Suspect]
     Dates: start: 20080303, end: 20080306
  23. HEPARIN SODIUM INJECTION [Suspect]
     Dates: start: 20080303, end: 20080306
  24. HEPARIN SODIUM INJECTION [Suspect]
     Dates: start: 20080303, end: 20080306
  25. HEPARIN SODIUM INJECTION [Suspect]
     Dates: start: 20080303, end: 20080306
  26. HEPARIN SODIUM INJECTION [Suspect]
     Dates: start: 20080303, end: 20080306
  27. HEPARIN SODIUM INJECTION [Suspect]
     Dates: start: 20080303, end: 20080306
  28. COLCHICINE [Suspect]
     Indication: GOUT
     Route: 065
     Dates: end: 20080202
  29. COLCHICINE [Suspect]
     Route: 048
     Dates: start: 20080229, end: 20080305
  30. ALTACE [Concomitant]
     Indication: PRODUCT USED FOR UNKNOWN INDICATION
     Route: 065
  31. AMLODIPINE [Concomitant]
     Indication: PRODUCT USED FOR UNKNOWN INDICATION
     Route: 048
  32. WARFARIN SODIUM [Concomitant]
     Indication: ATRIAL FIBRILLATION
     Route: 048
  33. WARFARIN SODIUM [Concomitant]
     Route: 048
  34. XALATAN [Concomitant]
     Indication: PRODUCT USED FOR UNKNOWN INDICATION
     Route: 065
  35. ESOMEPRAZOLE [Concomitant]
     Indication: PRODUCT USED FOR UNKNOWN INDICATION
     Route: 048
  36. ATIVAN [Concomitant]
     Indication: PRODUCT USED FOR UNKNOWN INDICATION
     Route: 048
  37. VITAMIN B COMPLEX CAP [Concomitant]
     Indication: PRODUCT USED FOR UNKNOWN INDICATION
     Route: 065
  38. CELEBREX [Concomitant]
     Indication: PRODUCT USED FOR UNKNOWN INDICATION
     Route: 065
  39. COLCHICINE [Concomitant]
     Route: 065
  40. MULTI-VIT [Concomitant]
     Indication: PRODUCT USED FOR UNKNOWN INDICATION
     Route: 065

REACTIONS (27)
  - ABDOMINAL PAIN [None]
  - ANAEMIA [None]
  - ASPIRATION [None]
  - BACK PAIN [None]
  - CRITICAL ILLNESS POLYNEUROPATHY [None]
  - DECREASED APPETITE [None]
  - DEEP VEIN THROMBOSIS [None]
  - DEHYDRATION [None]
  - DELIRIUM [None]
  - DYSPHAGIA [None]
  - DYSPNOEA [None]
  - HAEMORRHAGE [None]
  - HALLUCINATION [None]
  - HIATUS HERNIA [None]
  - HYPOTENSION [None]
  - HYPOXIA [None]
  - MENTAL DISORDER [None]
  - MYOCLONUS [None]
  - MYOPATHY TOXIC [None]
  - PNEUMONIA ASPIRATION [None]
  - RENAL FAILURE ACUTE [None]
  - RENAL TUBULAR NECROSIS [None]
  - RESPIRATORY DISTRESS [None]
  - RETROPERITONEAL HAEMATOMA [None]
  - SEPSIS [None]
  - UNRESPONSIVE TO STIMULI [None]
  - URINARY TRACT INFECTION FUNGAL [None]
